FAERS Safety Report 8176970-5 (Version None)
Quarter: 2012Q1

REPORT INFORMATION
  Report Type: 
  Country: None (occurrence: None)
  Receive Date: 20120301
  Receipt Date: 20120224
  Transmission Date: 20120608
  Serious: Yes (Death, Other)
  Sender: FDA-Public Use
  Company Number: FR-PFIZER INC-2011229734

PATIENT
  Age: 57 Year
  Sex: Male
  Weight: 120 kg

DRUGS (6)
  1. AMLODIPINE BESYLATE [Concomitant]
     Dosage: UNK
  2. LYRICA [Suspect]
     Dosage: 200 MG, 2X/DAY
     Dates: start: 20110601
  3. LYRICA [Suspect]
     Dosage: 25 MG DAILY
     Dates: start: 20110425
  4. ATORVASTATIN [Concomitant]
     Dosage: UNK
  5. ASPIRIN [Concomitant]
     Dosage: UNK
  6. MICARDIS [Concomitant]
     Dosage: UNK

REACTIONS (5)
  - ASPHYXIA [None]
  - REGRESSIVE BEHAVIOUR [None]
  - BULIMIA NERVOSA [None]
  - PATHOLOGICAL GAMBLING [None]
  - COMPLETED SUICIDE [None]
